FAERS Safety Report 10249400 (Version 1)
Quarter: 2014Q2

REPORT INFORMATION
  Report Type: Spontaneous
  Country: US (occurrence: None)
  Receive Date: 20140618
  Receipt Date: 20140618
  Transmission Date: 20141212
  Serious: Yes (Other)
  Sender: FDA-Public Use
  Company Number: None

PATIENT
  Age: 18 Year
  Sex: Male
  Weight: 74.84 kg

DRUGS (1)
  1. OLANZAPINE [Suspect]
     Indication: BIPOLAR DISORDER
     Route: 048
     Dates: start: 20140501, end: 20140617

REACTIONS (2)
  - Tremor [None]
  - Epistaxis [None]
